FAERS Safety Report 17850932 (Version 2)
Quarter: 2020Q2

REPORT INFORMATION
  Report Type: Report from Study
  Country: DE (occurrence: DE)
  Receive Date: 20200602
  Receipt Date: 20200611
  Transmission Date: 20200714
  Serious: Yes (Hospitalization)
  Sender: FDA-Public Use
  Company Number: DE-SEATTLE GENETICS-2020SGN02400

PATIENT

DRUGS (10)
  1. GLANDOMED [Concomitant]
     Dosage: UNK
     Route: 065
     Dates: start: 20200423
  2. BRENTUXIMAB VEDOTIN-MPI [Suspect]
     Active Substance: BRENTUXIMAB VEDOTIN
     Indication: HODGKIN^S DISEASE
     Dosage: 180 MILLIGRAM/SQ. METER
     Route: 065
     Dates: start: 20200518
  3. DACARBAZINE. [Suspect]
     Active Substance: DACARBAZINE
     Indication: HODGKIN^S DISEASE
     Dosage: 1242 MILLIGRAM/SQ. METER
     Route: 065
  4. CALCIDOC [Concomitant]
     Dosage: UNK, QD
     Route: 065
     Dates: start: 20200428
  5. COTRIM FORTE [Concomitant]
     Active Substance: SULFAMETHOXAZOLE\TRIMETHOPRIM
     Dosage: 960 MILLIGRAM
     Route: 065
     Dates: start: 20200429
  6. ETOPOSIDE. [Suspect]
     Active Substance: ETOPOSIDE
     Indication: HODGKIN^S DISEASE
     Dosage: 1268 MILLIGRAM/SQ. METER
     Route: 065
     Dates: start: 20200519
  7. DOXORUBICIN [Suspect]
     Active Substance: DOXORUBICIN
     Indication: HODGKIN^S DISEASE
     Dosage: 99 MILLIGRAM/KILOGRAM
     Route: 065
     Dates: start: 20200519
  8. CIPROFLOXACIN. [Concomitant]
     Active Substance: CIPROFLOXACIN
     Dosage: 500 MILLIGRAM, QD
     Route: 065
     Dates: start: 20200501
  9. CYCLOPHOSPHAMIDE. [Suspect]
     Active Substance: CYCLOPHOSPHAMIDE
     Indication: HODGKIN^S DISEASE
     Dosage: 3104 MILLIGRAM/SQ. METER
     Route: 065
     Dates: start: 20200519
  10. DEXAMETHASONE. [Suspect]
     Active Substance: DEXAMETHASONE
     Indication: HODGKIN^S DISEASE
     Dosage: UNK
     Route: 065
     Dates: start: 20200519

REACTIONS (1)
  - Pancytopenia [Recovered/Resolved]

NARRATIVE: CASE EVENT DATE: 20200529
